FAERS Safety Report 9865632 (Version 1)
Quarter: 2014Q1

REPORT INFORMATION
  Report Type: Spontaneous
  Country: US (occurrence: US)
  Receive Date: 20140203
  Receipt Date: 20140203
  Transmission Date: 20141002
  Serious: No
  Sender: FDA-Public Use
  Company Number: US-ALLERGAN-1306060US

PATIENT
  Age: 61 Year
  Sex: Female

DRUGS (10)
  1. RESTASIS [Suspect]
     Indication: DRY EYE
     Dosage: 2 GTT, BID
     Route: 047
     Dates: start: 2012
  2. LOTEMAX [Concomitant]
     Indication: EYE INFLAMMATION
     Dosage: 2 GTT, TID
     Route: 047
     Dates: start: 201304, end: 20130424
  3. REFRESH OPTIVE [Concomitant]
     Indication: DRY EYE
     Dosage: UNK UNK, QID
     Route: 047
     Dates: end: 201304
  4. REFRESH OPTIVE ADVANCED [Concomitant]
     Indication: DRY EYE
     Dosage: 2 GTT, QID
     Route: 047
     Dates: start: 201304
  5. XANAX [Concomitant]
     Indication: ANXIETY
     Dosage: 0.125 MG, BID
     Route: 048
  6. PRILOSEC                           /00661201/ [Concomitant]
     Indication: GASTROOESOPHAGEAL REFLUX DISEASE
     Dosage: 40 MG, QPM
     Route: 048
  7. ESTRADIOL [Concomitant]
     Indication: HORMONE REPLACEMENT THERAPY
     Dosage: 0.5 MG, UNK
     Route: 061
  8. TYLENOL                            /00020001/ [Concomitant]
     Indication: PAIN
     Dosage: UNK UNK, PRN
     Route: 048
  9. UNKNOWN CREAM [Concomitant]
     Indication: TRANSIENT ACANTHOLYTIC DERMATOSIS
     Dosage: UNK
     Route: 061
  10. UNKNOWN CREAM [Concomitant]
     Indication: PRODUCT USED FOR UNKNOWN INDICATION
     Dosage: UNK
     Route: 061

REACTIONS (3)
  - Instillation site pain [Unknown]
  - Eye irritation [Not Recovered/Not Resolved]
  - Dry eye [Not Recovered/Not Resolved]
